FAERS Safety Report 14911944 (Version 1)
Quarter: 2018Q2

REPORT INFORMATION
  Report Type: Spontaneous
  Country: FR (occurrence: FR)
  Receive Date: 20180518
  Receipt Date: 20180518
  Transmission Date: 20180711
  Serious: Yes (Other)
  Sender: FDA-Public Use
  Company Number: FR-MERCK KGAA-2048041

PATIENT
  Age: 49 Year
  Sex: Female

DRUGS (1)
  1. NOVOTHYROX [Suspect]
     Active Substance: LEVOTHYROXINE SODIUM
     Indication: POST PROCEDURAL HYPOTHYROIDISM
     Route: 048
     Dates: start: 20170423

REACTIONS (25)
  - Sleep disorder [Not Recovered/Not Resolved]
  - Heart sounds [Recovered/Resolved]
  - Iron binding capacity total increased [None]
  - Transferrin saturation increased [None]
  - Constipation [None]
  - Palpitations [None]
  - Peripheral swelling [None]
  - Oral herpes [None]
  - Depressed mood [None]
  - Extrasystoles [Not Recovered/Not Resolved]
  - Gastrointestinal disorder [None]
  - Blood thyroid stimulating hormone decreased [Recovered/Resolved]
  - Muscle atrophy [None]
  - Anti-transglutaminase antibody [None]
  - C-reactive protein abnormal [None]
  - Gamma-glutamyltransferase increased [None]
  - Arrhythmia [Recovered/Resolved]
  - Decreased interest [None]
  - Alopecia [Recovered/Resolved]
  - Mood altered [Recovered/Resolved]
  - Anger [None]
  - Asthenia [None]
  - Social avoidant behaviour [None]
  - Alanine aminotransferase increased [None]
  - Diarrhoea [None]

NARRATIVE: CASE EVENT DATE: 201705
